FAERS Safety Report 8740694 (Version 3)
Quarter: 2013Q2

REPORT INFORMATION
  Report Type: Spontaneous
  Country: US (occurrence: US)
  Receive Date: 20120823
  Receipt Date: 20130506
  Transmission Date: 20140414
  Serious: Yes (Disabling, Other)
  Sender: FDA-Public Use
  Company Number: US-ASTRAZENECA-2012SE57553

PATIENT
  Age: 65 Year
  Sex: Female

DRUGS (1)
  1. ARIMIDEX [Suspect]
     Route: 048

REACTIONS (7)
  - Neoplasm malignant [Unknown]
  - Breast cancer female [Unknown]
  - Accident at work [Unknown]
  - Movement disorder [Unknown]
  - Upper limb fracture [Unknown]
  - Pneumonia [Unknown]
  - Drug dose omission [Unknown]
